FAERS Safety Report 7831169-4 (Version None)
Quarter: 2011Q4

REPORT INFORMATION
  Report Type: 
  Country: None (occurrence: None)
  Receive Date: 20111021
  Receipt Date: 20111014
  Transmission Date: 20120403
  Serious: No
  Sender: FDA-Public Use
  Company Number: US-PFIZER INC-2011017313

PATIENT
  Sex: Female

DRUGS (2)
  1. LATANOPROST [Suspect]
  2. LATANOPROST [Suspect]

REACTIONS (2)
  - EYE IRRITATION [None]
  - EXPIRED DRUG ADMINISTERED [None]
